FAERS Safety Report 19431954 (Version 1)
Quarter: 2021Q2

REPORT INFORMATION
  Report Type: Spontaneous
  Country: BR (occurrence: BR)
  Receive Date: 20210618
  Receipt Date: 20210618
  Transmission Date: 20210717
  Serious: Yes (Other)
  Sender: FDA-Public Use
  Company Number: BR-NOVOPROD-821074

PATIENT
  Age: 86 Year
  Sex: Female
  Weight: 79.7 kg

DRUGS (9)
  1. INDAPAMIDE. [Concomitant]
     Active Substance: INDAPAMIDE
     Dosage: 1.5 MG, QD
     Route: 065
  2. RISPERIDONE. [Concomitant]
     Active Substance: RISPERIDONE
     Dosage: 1 MG, QD(AT NIGHT)
     Route: 065
  3. SINVASTATINA [Concomitant]
     Active Substance: SIMVASTATIN
     Dosage: 10 MG, QD
     Route: 065
  4. ACETYLSALICYLIC ACID [Concomitant]
     Active Substance: ASPIRIN
     Dosage: 81 MG, QD
     Route: 065
  5. DONEPEZIL HYDROCHLORIDE;MEMANTINE HYDROCHLORIDE [Concomitant]
     Dosage: 10 MG, QD
     Route: 065
  6. DONEPEZIL HYDROCHLORIDE. [Concomitant]
     Active Substance: DONEPEZIL HYDROCHLORIDE
     Dosage: 2.5 MG, QD(AT NIGHT)
     Route: 065
  7. INSULIN ASPART [Suspect]
     Active Substance: INSULIN ASPART
     Indication: PRODUCT USED FOR UNKNOWN INDICATION
     Dosage: 5IU BEFORE LUNCH
     Route: 065
  8. INSULATARD HM [Suspect]
     Active Substance: INSULIN HUMAN
     Indication: PRODUCT USED FOR UNKNOWN INDICATION
     Dosage: 38 IU, QD(30 + 0 + 8 IU)
     Route: 065
  9. DONEPEZIL HYDROCHLORIDE;MEMANTINE HYDROCHLORIDE [Concomitant]
     Dosage: 20 MG, QD
     Route: 065

REACTIONS (4)
  - Oedema [Unknown]
  - Somnolence [Unknown]
  - Diabetic metabolic decompensation [Unknown]
  - Hyperhidrosis [Unknown]
